FAERS Safety Report 24343488 (Version 1)
Quarter: 2024Q3

REPORT INFORMATION
  Report Type: Spontaneous
  Country: US (occurrence: US)
  Receive Date: 20240920
  Receipt Date: 20240920
  Transmission Date: 20241017
  Serious: No
  Sender: TORRENT
  Company Number: US-TORRENT-00013749

PATIENT
  Sex: Female
  Weight: 70 kg

DRUGS (2)
  1. DAPSONE [Suspect]
     Active Substance: DAPSONE
     Indication: Acne
     Dosage: NDC: 13668-605-05
     Route: 065
  2. SPIRONOLACTONE [Concomitant]
     Active Substance: SPIRONOLACTONE
     Indication: Product used for unknown indication
     Dosage: UNKNOWN
     Route: 065

REACTIONS (4)
  - Application site discomfort [Unknown]
  - Product physical consistency issue [Unknown]
  - Application site laceration [Unknown]
  - Product substitution issue [Unknown]
